FAERS Safety Report 9291413 (Version 1)
Quarter: 2013Q2

REPORT INFORMATION
  Report Type: Spontaneous
  Country: US (occurrence: US)
  Receive Date: 20130515
  Receipt Date: 20130515
  Transmission Date: 20140414
  Serious: No
  Sender: FDA-Public Use
  Company Number: US-BAUSCH-BL-2013-000678

PATIENT
  Age: 72 Year
  Sex: Male
  Weight: 70 kg

DRUGS (9)
  1. BROMDAY 0.09% [Suspect]
     Indication: CATARACT OPERATION
     Route: 047
     Dates: start: 20111031, end: 201111
  2. ZYMAXID (GATIFLOXACIN OPHTHALMIC SOLUTION) 0.5% [Suspect]
     Indication: CATARACT OPERATION
     Route: 047
     Dates: start: 20111031, end: 201111
  3. PREDNISOLONE ACETATE [Suspect]
     Indication: CATARACT OPERATION
     Route: 047
     Dates: start: 20111031, end: 201112
  4. SIMVASTATIN [Concomitant]
     Indication: HYPERLIPIDAEMIA
     Route: 048
  5. MIRTAZAPINE [Concomitant]
     Indication: DEPRESSION
     Route: 048
  6. CLOPIDOGREL BISULFATE [Concomitant]
     Indication: PRODUCT USED FOR UNKNOWN INDICATION
     Route: 048
  7. FORMOTEROL FUMARATE/BUDESONIDE [Concomitant]
     Indication: CHRONIC OBSTRUCTIVE PULMONARY DISEASE
     Dosage: DOSE UNIT:SPRAY
     Route: 055
  8. HYDROCHLOROTHIAZIDE/OLMESARTAN MEDOXOMIL [Concomitant]
     Indication: HYPERTENSION
     Dosage: 20 MG/12/5 MG
     Route: 048
  9. VENLAFAXINE [Concomitant]
     Indication: DEPRESSION
     Route: 048

REACTIONS (1)
  - Toxic anterior segment syndrome [Recovered/Resolved]
